FAERS Safety Report 17767466 (Version 1)
Quarter: 2020Q2

REPORT INFORMATION
  Report Type: Spontaneous
  Country: AT (occurrence: AT)
  Receive Date: 20200511
  Receipt Date: 20200511
  Transmission Date: 20200714
  Serious: Yes (Other)
  Sender: FDA-Public Use
  Company Number: AT-LUPIN PHARMACEUTICALS INC.-2020-02052

PATIENT
  Age: 25 Year
  Sex: Female

DRUGS (2)
  1. HEPARIN [Concomitant]
     Active Substance: HEPARIN SODIUM
     Indication: PRE-ECLAMPSIA
     Dosage: UNK, LOW MOLECULAR WEIGHT
     Route: 065
  2. PRAVASTATIN. [Suspect]
     Active Substance: PRAVASTATIN
     Indication: PRE-ECLAMPSIA
     Dosage: 20 MILLIGRAM, QD
     Route: 065

REACTIONS (3)
  - Maternal exposure during pregnancy [Unknown]
  - Foetal death [None]
  - Foetal growth restriction [Unknown]
